FAERS Safety Report 19120559 (Version 1)
Quarter: 2021Q2

REPORT INFORMATION
  Report Type: Spontaneous
  Country: US (occurrence: US)
  Receive Date: 20210411
  Receipt Date: 20210411
  Transmission Date: 20210717
  Serious: Yes (Other)
  Sender: FDA-Public Use
  Company Number: None

PATIENT
  Age: 85 Year
  Sex: Female
  Weight: 57.61 kg

DRUGS (1)
  1. INLYTA [Suspect]
     Active Substance: AXITINIB
     Indication: RENAL CELL CARCINOMA
     Route: 048
     Dates: start: 20201229, end: 20210401

REACTIONS (4)
  - Fatigue [None]
  - Amnesia [None]
  - Dementia [None]
  - Hallucination [None]

NARRATIVE: CASE EVENT DATE: 20201231
